FAERS Safety Report 12654347 (Version 1)
Quarter: 2016Q3

REPORT INFORMATION
  Report Type: Spontaneous
  Country: US (occurrence: None)
  Receive Date: 20160815
  Receipt Date: 20160815
  Transmission Date: 20161109
  Serious: Yes (Other)
  Sender: FDA-Public Use
  Company Number: None

PATIENT
  Age: 45 Year
  Sex: Female
  Weight: 93.44 kg

DRUGS (1)
  1. ADVIL [Suspect]
     Active Substance: IBUPROFEN
     Indication: MYALGIA
     Dosage: 1 CAPLETS EVERY 4 HOURS TAKEN BY MOUTH
     Route: 048
     Dates: start: 20160801, end: 20160813

REACTIONS (3)
  - Malaise [None]
  - Product label issue [None]
  - Product formulation issue [None]

NARRATIVE: CASE EVENT DATE: 20160813
